FAERS Safety Report 6859199-X (Version None)
Quarter: 2010Q3

REPORT INFORMATION
  Report Type: 
  Country: None (occurrence: None)
  Receive Date: 20100719
  Receipt Date: 20080203
  Transmission Date: 20110219
  Serious: No
  Sender: FDA-Public Use
  Company Number: US-PFIZER INC-2008019020

PATIENT

DRUGS (2)
  1. CHANTIX [Suspect]
  2. CELEXA [Concomitant]
     Indication: ANXIETY

REACTIONS (4)
  - ANXIETY DISORDER [None]
  - DEPRESSED MOOD [None]
  - PANIC ATTACK [None]
  - PERSONALITY DISORDER [None]
